FAERS Safety Report 8718136 (Version 3)
Quarter: 2012Q4

REPORT INFORMATION
  Report Type: Spontaneous
  Country: US (occurrence: None)
  Receive Date: 20120725
  Receipt Date: 20120904
  Transmission Date: 20130627
  Serious: Yes (Hospitalization)
  Sender: FDA-Public Use
  Company Number: TPA2012A04831

PATIENT
  Age: 79 Year
  Sex: Female
  Weight: 65.77 kg

DRUGS (6)
  1. ACTOS [Suspect]
     Indication: TYPE 2 DIABETES MELLITUS
     Route: 048
     Dates: end: 20120622
  2. AMARYL [Suspect]
     Indication: TYPE 2 DIABETES MELLITUS
     Dosage: 2 MG, 1 IN 1 D
     Dates: start: 20120621, end: 20120622
  3. JANUVIA [Suspect]
     Indication: TYPE 2 DIABETES MELLITUS
  4. JANUVIA [Suspect]
     Indication: TYPE 2 DIABETES MELLITUS
  5. DIOVAN [Concomitant]
  6. TRICOR [Concomitant]

REACTIONS (12)
  - Feeling abnormal [None]
  - Blood glucose decreased [None]
  - Headache [None]
  - Coordination abnormal [None]
  - Nausea [None]
  - Heart rate increased [None]
  - Coronary arterial stent insertion [None]
  - Bladder perforation [None]
  - Dizziness [None]
  - Abdominal pain upper [None]
  - Tremor [None]
  - Blood glucose increased [None]
